FAERS Safety Report 25183988 (Version 2)
Quarter: 2025Q3

REPORT INFORMATION
  Report Type: Spontaneous
  Country: EU (occurrence: EU)
  Receive Date: 20250410
  Receipt Date: 20250809
  Transmission Date: 20251020
  Serious: Yes (Other)
  Sender: ALEXION PHARMACEUTICALS
  Company Number: EU-AstraZeneca-CH-00843412A

PATIENT
  Sex: Female

DRUGS (1)
  1. TAGRISSO [Suspect]
     Active Substance: OSIMERTINIB
     Route: 065

REACTIONS (6)
  - Brain oedema [Unknown]
  - Bronchial obstruction [Unknown]
  - Lymphangiosis carcinomatosa [Unknown]
  - Pleural effusion [Unknown]
  - Pericardial effusion [Unknown]
  - Headache [Unknown]
